FAERS Safety Report 10215799 (Version 5)
Quarter: 2014Q4

REPORT INFORMATION
  Report Type: Report from Study
  Country: CA (occurrence: CA)
  Receive Date: 20140604
  Receipt Date: 20141021
  Transmission Date: 20150528
  Serious: Yes (Death, Hospitalization, Other)
  Sender: FDA-Public Use
  Company Number: PHHY2014CA067419

PATIENT
  Age: 71 Year
  Sex: Male

DRUGS (17)
  1. CLOZARIL [Suspect]
     Active Substance: CLOZAPINE
     Indication: NEUROPSYCHIATRIC SYNDROME
  2. HALDOL [Concomitant]
     Active Substance: HALOPERIDOL
     Indication: AGITATION
     Dosage: 0.5 MG, Q4H
     Route: 030
  3. LACTULOSE. [Concomitant]
     Active Substance: LACTULOSE
     Indication: PRODUCT USED FOR UNKNOWN INDICATION
     Dosage: 15 ML, BID
     Route: 048
  4. TAMSULOSIN [Concomitant]
     Active Substance: TAMSULOSIN
     Indication: PRODUCT USED FOR UNKNOWN INDICATION
     Dosage: 0.4 MG, QHS
     Route: 065
  5. CLOZARIL [Suspect]
     Active Substance: CLOZAPINE
     Indication: DELUSION
     Dosage: 50 MG, BID
     Route: 048
     Dates: start: 20140107
  6. CALCITRIOL. [Concomitant]
     Active Substance: CALCITRIOL
     Indication: PRODUCT USED FOR UNKNOWN INDICATION
     Dosage: 0.5 MG, QD
     Route: 065
  7. CLONAZEPAM. [Concomitant]
     Active Substance: CLONAZEPAM
     Dosage: 1 MG, QHS
     Route: 065
  8. FLONAX [Concomitant]
     Indication: PRODUCT USED FOR UNKNOWN INDICATION
     Route: 065
  9. LEVODOPA/CARBIDOPA [Concomitant]
     Active Substance: CARBIDOPA\LEVODOPA
     Indication: PRODUCT USED FOR UNKNOWN INDICATION
     Dosage: 100/25 (UNIT UNSPECIFIED) TID
     Route: 048
  10. FLUXIN//FLUOXETINE HYDROCHLORIDE [Concomitant]
     Indication: PRODUCT USED FOR UNKNOWN INDICATION
     Dosage: 0.1 MG, TID
     Route: 048
  11. CLOZARIL [Suspect]
     Active Substance: CLOZAPINE
     Indication: PSYCHOTIC DISORDER
     Dosage: 50 MG, BID
     Route: 048
     Dates: start: 20130923
  12. LIPITOR [Concomitant]
     Active Substance: ATORVASTATIN CALCIUM
     Indication: PRODUCT USED FOR UNKNOWN INDICATION
     Dosage: 10 MG, QHS
     Route: 065
  13. CLONAZEPAM. [Concomitant]
     Active Substance: CLONAZEPAM
     Indication: PRODUCT USED FOR UNKNOWN INDICATION
     Dosage: 0.5 MG, TID
     Route: 048
  14. SINEMET CR [Concomitant]
     Active Substance: CARBIDOPA\LEVODOPA
     Indication: PRODUCT USED FOR UNKNOWN INDICATION
     Dosage: 200/ 50 (UNIT UNSPECIFIED) QHS
     Route: 065
  15. PAROXETIN [Concomitant]
     Active Substance: PAROXETINE HYDROCHLORIDE
     Indication: PRODUCT USED FOR UNKNOWN INDICATION
     Dosage: 20 MG, QHS
     Route: 065
  16. TRAZODONE [Concomitant]
     Active Substance: TRAZODONE HYDROCHLORIDE
     Indication: PRODUCT USED FOR UNKNOWN INDICATION
     Dosage: 75 MG, QHS
     Route: 048
  17. COLACE [Concomitant]
     Active Substance: DOCUSATE SODIUM
     Indication: PRODUCT USED FOR UNKNOWN INDICATION
     Route: 065

REACTIONS (7)
  - Fall [Recovered/Resolved]
  - Parkinson^s disease [Fatal]
  - Dementia [Fatal]
  - Syncope [Unknown]
  - Myocardial infarction [Fatal]
  - Orthostatic hypotension [Fatal]
  - Depression [Fatal]

NARRATIVE: CASE EVENT DATE: 20140523
